FAERS Safety Report 5990694-1 (Version None)
Quarter: 2008Q4

REPORT INFORMATION
  Report Type: 
  Country: None (occurrence: None)
  Receive Date: 20081211
  Receipt Date: 20081203
  Transmission Date: 20090506
  Serious: Yes (Disabling, Other)
  Sender: FDA-Public Use
  Company Number: PHEH2008US10781

PATIENT
  Age: 35 Year
  Sex: Female

DRUGS (1)
  1. ZELNORM [Suspect]
     Dosage: UNK, UNK
     Dates: start: 20020801, end: 20070401

REACTIONS (8)
  - CORONARY ANGIOPLASTY [None]
  - CORONARY ARTERIAL STENT INSERTION [None]
  - CORONARY ARTERY DISEASE [None]
  - DECREASED INTEREST [None]
  - EMOTIONAL DISTRESS [None]
  - GENERAL PHYSICAL HEALTH DETERIORATION [None]
  - PAIN [None]
  - PHYSICAL DISABILITY [None]
